FAERS Safety Report 5217678-5 (Version None)
Quarter: 2006Q4

REPORT INFORMATION
  Report Type: 
  Country: None (occurrence: None)
  Receive Date: 20061130
  Receipt Date: 20060316
  Transmission Date: 20070319
  Serious: Yes (Other)
  Sender: FDA-Public Use
  Company Number: US200601004864

PATIENT
  Age: 37 Year
  Weight: 120.2 kg

DRUGS (14)
  1. OLANZAPINE [Suspect]
     Indication: SCHIZOPHRENIA
     Dates: start: 20030601
  2. CYCLOBENZAPRINE HCL [Concomitant]
  3. QUETIAPINE FUMARATE [Concomitant]
  4. TOPIRAMATE [Concomitant]
  5. GABAPENTIN [Concomitant]
  6. ESCITALOPRAM [Concomitant]
  7. BUPROPION HCL [Concomitant]
  8. TIZANIDINE HCL [Concomitant]
  9. OXYCODONE HCL [Concomitant]
  10. ZOLPIDEM TARTRATE [Concomitant]
  11. LAMOTRIGINE [Concomitant]
  12. PREDNISONE TAB [Concomitant]
  13. FELODIPINE [Concomitant]
  14. RISPERIDONE [Concomitant]

REACTIONS (2)
  - DIABETES MELLITUS NON-INSULIN-DEPENDENT [None]
  - WEIGHT INCREASED [None]
